FAERS Safety Report 4384729-X (Version None)
Quarter: 2004Q2

REPORT INFORMATION
  Report Type: 
  Country: None (occurrence: None)
  Receive Date: 20040621
  Receipt Date: 20040609
  Transmission Date: 20050107
  Serious: Yes (Hospitalization, Other)
  Sender: FDA-Public Use
  Company Number: HQWYE442514JUN04

PATIENT
  Age: 33 Year
  Sex: Female

DRUGS (7)
  1. EFFEXOR [Suspect]
     Indication: POST-TRAUMATIC STRESS DISORDER
     Dosage: SEE IMAGE
     Dates: start: 20050115, end: 20040117
  2. EFFEXOR [Suspect]
     Indication: POST-TRAUMATIC STRESS DISORDER
     Dosage: SEE IMAGE
     Dates: start: 20040118
  3. ELTROXIN (LEVOTHYROXINE SODIUM) [Concomitant]
  4. DEROXAT (PAROXETINE HYDROCHLORIDE) [Concomitant]
  5. REBOXETINE MESYLATE [Concomitant]
  6. NOZINAN (LEVOMEPROMAZINE) [Concomitant]
  7. . [Concomitant]

REACTIONS (10)
  - DYSPHORIA [None]
  - EUPHORIC MOOD [None]
  - HEADACHE [None]
  - IMPULSIVE BEHAVIOUR [None]
  - INAPPROPRIATE AFFECT [None]
  - NAUSEA [None]
  - PSYCHOMOTOR HYPERACTIVITY [None]
  - RESTLESSNESS [None]
  - TENSION [None]
  - TREATMENT NONCOMPLIANCE [None]
